FAERS Safety Report 8513904-5 (Version None)
Quarter: 2012Q3

REPORT INFORMATION
  Report Type: 
  Country: None (occurrence: None)
  Receive Date: 20120717
  Receipt Date: 20120705
  Transmission Date: 20120928
  Serious: Yes (Other)
  Sender: FDA-Public Use
  Company Number: BR-SANOFI-AVENTIS-2012SA048182

PATIENT

DRUGS (1)
  1. JEVTANA KIT [Suspect]
     Route: 065

REACTIONS (1)
  - EXTRAVASATION [None]
